FAERS Safety Report 4801561-0 (Version None)
Quarter: 2005Q4

REPORT INFORMATION
  Report Type: 
  Country: None (occurrence: None)
  Receive Date: 20051011
  Receipt Date: 20050928
  Transmission Date: 20060501
  Serious: Yes (Other)
  Sender: FDA-Public Use
  Company Number: 2005136408

PATIENT
  Age: 47 Year
  Sex: Male

DRUGS (5)
  1. ZMAX [Suspect]
     Indication: PNEUMONIA
     Dosage: (2 GRAM, ONCE)
     Dates: start: 20050926, end: 20050926
  2. ZMAX [Suspect]
     Indication: UPPER RESPIRATORY TRACT INFECTION
     Dosage: (2 GRAM, ONCE)
     Dates: start: 20050926, end: 20050926
  3. DEPAKOTE [Concomitant]
  4. MELLAPRIL (THIORIDAZINE HYDROCHLORIDE) [Concomitant]
  5. SINEQUAN [Concomitant]

REACTIONS (3)
  - DYSPNOEA [None]
  - HEADACHE [None]
  - VOMITING [None]
